FAERS Safety Report 25177150 (Version 1)
Quarter: 2025Q2

REPORT INFORMATION
  Report Type: Other
  Country: HU (occurrence: HU)
  Receive Date: 20250409
  Receipt Date: 20250409
  Transmission Date: 20250717
  Serious: Yes (Other)
  Sender: ANI
  Company Number: HU-ANIPHARMA-022253

PATIENT
  Age: 39 Year
  Sex: Female

DRUGS (2)
  1. CIPROFLOXACIN [Suspect]
     Active Substance: CIPROFLOXACIN
     Indication: Hereditary angioedema with C1 esterase inhibitor deficiency
  2. AMOXICILLIN\CLAVULANIC ACID [Concomitant]
     Active Substance: AMOXICILLIN\CLAVULANIC ACID
     Indication: Hereditary angioedema with C1 esterase inhibitor deficiency

REACTIONS (1)
  - Gastrointestinal oedema [Unknown]
